FAERS Safety Report 6127833-8 (Version None)
Quarter: 2009Q1

REPORT INFORMATION
  Report Type: 
  Country: None (occurrence: None)
  Receive Date: 20090320
  Receipt Date: 20090320
  Transmission Date: 20090719
  Serious: No
  Sender: FDA-Public Use
  Company Number: None

PATIENT
  Sex: Female
  Weight: 46.2669 kg

DRUGS (1)
  1. HYDROCODONE BITARTRATE + ACETAMINOPHEN [Suspect]
     Indication: OSTEOPOROSIS
     Dosage: 1 TABLET EVERY 3-4 HRS
     Dates: start: 20081201, end: 20090301

REACTIONS (1)
  - DRUG INEFFECTIVE [None]
